FAERS Safety Report 8430101-2 (Version None)
Quarter: 2012Q2

REPORT INFORMATION
  Report Type: 
  Country: None (occurrence: None)
  Receive Date: 20120612
  Receipt Date: 20120604
  Transmission Date: 20120825
  Serious: Yes (Hospitalization)
  Sender: FDA-Public Use
  Company Number: US-US-EMD SERONO, INC.-7020021

PATIENT
  Sex: Male
  Weight: 93 kg

DRUGS (4)
  1. NEURONTIN [Concomitant]
     Indication: NEURALGIA
  2. REBIF [Suspect]
     Indication: MULTIPLE SCLEROSIS
     Route: 058
     Dates: start: 20070117
  3. PREVACID [Concomitant]
     Indication: GASTROOESOPHAGEAL REFLUX DISEASE
  4. PHENERGAN [Concomitant]
     Indication: NAUSEA

REACTIONS (1)
  - INTERVERTEBRAL DISC PROTRUSION [None]
